FAERS Safety Report 7441646-6 (Version None)
Quarter: 2011Q2

REPORT INFORMATION
  Report Type: 
  Country: None (occurrence: None)
  Receive Date: 20110420
  Receipt Date: 20110413
  Transmission Date: 20111010
  Serious: Yes (Hospitalization)
  Sender: FDA-Public Use
  Company Number: 2011SP011956

PATIENT
  Sex: Male

DRUGS (3)
  1. DIPROSONE [Suspect]
     Indication: PSORIASIS
     Dosage: CUT
     Route: 003
     Dates: start: 20000101
  2. ALTEIS [Concomitant]
  3. PRAVASTATIN [Concomitant]

REACTIONS (1)
  - CATARACT [None]
